FAERS Safety Report 13635232 (Version 2)
Quarter: 2017Q3

REPORT INFORMATION
  Report Type: Spontaneous
  Country: US (occurrence: US)
  Receive Date: 20170609
  Receipt Date: 20170803
  Transmission Date: 20171127
  Serious: No
  Sender: FDA-Public Use
  Company Number: US-PFIZER INC-2017247534

PATIENT
  Age: 50 Year
  Sex: Female

DRUGS (2)
  1. NEURONTIN [Suspect]
     Active Substance: GABAPENTIN
     Dosage: 400 MG, 3X/DAY
     Dates: start: 20161113
  2. NEURONTIN [Suspect]
     Active Substance: GABAPENTIN
     Indication: FIBROMYALGIA
     Dosage: 300 MG, UNK
     Dates: start: 201610

REACTIONS (1)
  - Drug ineffective for unapproved indication [Unknown]

NARRATIVE: CASE EVENT DATE: 201610
